FAERS Safety Report 7325366 (Version 4)
Quarter: 2013Q4

REPORT INFORMATION
  Report Type: Spontaneous
  Country: CA (occurrence: CA)
  Receive Date: 20100319
  Receipt Date: 20131003
  Transmission Date: 20140711
  Serious: Yes (Hospitalization, Other)
  Sender: FDA-Public Use
  Company Number: CA-PFIZER INC-2010031044

PATIENT
  Age: 43 Year
  Sex: Male
  Weight: 63.49 kg

DRUGS (6)
  1. LIPITOR [Suspect]
     Indication: BLOOD CHOLESTEROL INCREASED
     Dosage: 20 MG, DAILY
     Route: 048
     Dates: start: 2006, end: 2009
  2. LIPITOR [Suspect]
     Indication: CARDIAC DISORDER
  3. RISPERDAL [Concomitant]
     Dosage: UNK
     Dates: start: 200904
  4. COVERSYL [Concomitant]
     Indication: BLOOD PRESSURE
     Dosage: UNK
     Dates: start: 200904
  5. PLAVIX [Concomitant]
     Dosage: UNK
     Dates: start: 200904
  6. BABY ASPIRIN [Concomitant]
     Dosage: UNK
     Dates: start: 200904

REACTIONS (5)
  - Acute myocardial infarction [Unknown]
  - Blood disorder [Unknown]
  - Joint swelling [Unknown]
  - Pain [Recovered/Resolved]
  - Myalgia [Recovered/Resolved]
